FAERS Safety Report 10007464 (Version 1)
Quarter: 2014Q1

REPORT INFORMATION
  Report Type: Spontaneous
  Country: US (occurrence: US)
  Receive Date: 20140313
  Receipt Date: 20140313
  Transmission Date: 20141002
  Serious: Yes (Hospitalization)
  Sender: FDA-Public Use
  Company Number: US-BAXTER-2014BAX012119

PATIENT
  Sex: Male

DRUGS (2)
  1. DIANEAL PD2 (ULTRABAG) [Suspect]
     Indication: NEPHROPATHY
     Route: 033
     Dates: start: 201311
  2. DIANEAL PD2 (ULTRABAG) [Suspect]
     Indication: NEPHROPATHY
     Route: 033
     Dates: start: 201311

REACTIONS (1)
  - Pneumonia [Recovered/Resolved]
